APPROVED DRUG PRODUCT: TERIFLUNOMIDE
Active Ingredient: TERIFLUNOMIDE
Strength: 7MG
Dosage Form/Route: TABLET;ORAL
Application: A209702 | Product #001
Applicant: SOMERSET THERAPEUTICS LLC
Approved: Feb 28, 2020 | RLD: No | RS: No | Type: DISCN